FAERS Safety Report 23504683 (Version 1)
Quarter: 2024Q1

REPORT INFORMATION
  Report Type: Spontaneous
  Country: US (occurrence: None)
  Receive Date: 20240208
  Receipt Date: 20240208
  Transmission Date: 20240409
  Serious: Yes (Death, Life-Threatening, Hospitalization, Disabling)
  Sender: FDA-Public Use
  Company Number: None

PATIENT
  Age: 96 Year
  Sex: Male
  Weight: 66.15 kg

DRUGS (5)
  1. FLUDEOXYGLUCOSE [Suspect]
     Active Substance: FLUDEOXYGLUCOSE
     Indication: Scan with contrast
     Dosage: OTHER ROUTE : IV ADMINISTRATION;?
     Route: 050
     Dates: start: 20230512, end: 20230512
  2. KEYTRUDA [Suspect]
     Active Substance: PEMBROLIZUMAB
  3. VITAMINS [Concomitant]
     Active Substance: VITAMINS
  4. garlic [Concomitant]
  5. many other common supplements [Concomitant]

REACTIONS (2)
  - Off label use [None]
  - Cerebrovascular accident [None]

NARRATIVE: CASE EVENT DATE: 20230513
